FAERS Safety Report 4339353-1 (Version None)
Quarter: 2004Q2

REPORT INFORMATION
  Report Type: 
  Country: None (occurrence: None)
  Receive Date: 20040414
  Receipt Date: 20040414
  Transmission Date: 20050107
  Serious: Yes (Hospitalization)
  Sender: FDA-Public Use
  Company Number: None

PATIENT
  Age: 63 Year
  Sex: Male
  Weight: 154.67 kg

DRUGS (3)
  1. TORADOL [Suspect]
     Indication: POST PROCEDURAL PAIN
     Dosage: 30 MG Q 6 HOURS IV
     Route: 042
     Dates: start: 20040304, end: 20040305
  2. LOTREL [Concomitant]
  3. VIOXX [Concomitant]

REACTIONS (3)
  - DIALYSIS [None]
  - OLIGURIA [None]
  - RENAL FAILURE ACUTE [None]
